FAERS Safety Report 6968923-7 (Version None)
Quarter: 2010Q3

REPORT INFORMATION
  Report Type: 
  Country: None (occurrence: None)
  Receive Date: 20100901
  Receipt Date: 20100901
  Transmission Date: 20110219
  Serious: Yes (Hospitalization)
  Sender: FDA-Public Use
  Company Number: 017

PATIENT
  Age: 82 Year
  Sex: Female

DRUGS (1)
  1. DR. FRANK'S JOINT + MUSCLE PAIN RELIEF [Suspect]
     Indication: ARTHRALGIA
     Dosage: 3 SPRAYS THREE X'S/DAY

REACTIONS (1)
  - GASTROINTESTINAL VIRAL INFECTION [None]
